FAERS Safety Report 9683912 (Version 2)
Quarter: 2014Q1

REPORT INFORMATION
  Report Type: Spontaneous
  Country: US (occurrence: US)
  Receive Date: 20131112
  Receipt Date: 20140212
  Transmission Date: 20141002
  Serious: No
  Sender: FDA-Public Use
  Company Number: US-MALLINCKRODT-T201304776

PATIENT
  Age: 48 Year
  Sex: Male
  Weight: 74.83 kg

DRUGS (4)
  1. FENTANYL TRANSDERMAL SYSTEM [Suspect]
     Indication: PAIN
     Dosage: 50 UG/HR, Q 72 HRS
     Route: 062
     Dates: start: 20131030
  2. OXYCODONE [Concomitant]
     Indication: BREAKTHROUGH PAIN
     Dosage: 10 MG, TID
     Route: 048
  3. ATIVAN [Concomitant]
     Indication: ANXIETY
     Dosage: 1 MG, TID
     Route: 048
  4. FENTANYL [Concomitant]
     Indication: PAIN
     Dosage: 25 MCG/HR IN THE SUMMER
     Dates: end: 20131030

REACTIONS (4)
  - Tinnitus [Recovered/Resolved]
  - Vision blurred [Recovered/Resolved]
  - Euphoric mood [Recovered/Resolved]
  - Anxiety [Recovered/Resolved]
